FAERS Safety Report 9345650 (Version 2)
Quarter: 2013Q3

REPORT INFORMATION
  Report Type: Spontaneous
  Country: US (occurrence: US)
  Receive Date: 20130613
  Receipt Date: 20130729
  Transmission Date: 20140515
  Serious: Yes (Hospitalization)
  Sender: FDA-Public Use
  Company Number: US-MYLANLABS-2013S1012186

PATIENT
  Sex: Female
  Weight: 102.51 kg

DRUGS (5)
  1. LEVOTHYROXINE [Suspect]
  2. EFFEXOR SR [Suspect]
     Indication: DEPRESSION
  3. ZOLOFT [Suspect]
     Indication: DEPRESSION
  4. HERCEPTIN [Suspect]
  5. ANTIBIOTICS [Suspect]

REACTIONS (12)
  - Mastectomy [Unknown]
  - Drug ineffective [Unknown]
  - Liver disorder [Unknown]
  - Blood test abnormal [Unknown]
  - Stress [Unknown]
  - Anxiety [Unknown]
  - Heart rate increased [Unknown]
  - Hypertension [Unknown]
  - Fall [Unknown]
  - Joint injury [Unknown]
  - Vertigo [Unknown]
  - Dizziness [Unknown]
